FAERS Safety Report 12105708 (Version 1)
Quarter: 2016Q1

REPORT INFORMATION
  Report Type: Spontaneous
  Country: CA (occurrence: US)
  Receive Date: 20160223
  Receipt Date: 20160223
  Transmission Date: 20160526
  Serious: No
  Sender: FDA-Public Use
  Company Number: CA-PFIZER INC-2016110800

PATIENT
  Sex: Female

DRUGS (2)
  1. ADVIL PEDIATRIC DROPS [Suspect]
     Active Substance: IBUPROFEN
     Indication: PAIN
  2. ADVIL PEDIATRIC DROPS [Suspect]
     Active Substance: IBUPROFEN
     Indication: PYREXIA

REACTIONS (4)
  - Drug ineffective [Unknown]
  - Poor quality drug administered [Unknown]
  - Drug administration error [Unknown]
  - Product quality issue [Unknown]
